FAERS Safety Report 12933619 (Version 1)
Quarter: 2016Q4

REPORT INFORMATION
  Report Type: Report from Study
  Country: US (occurrence: US)
  Receive Date: 20161111
  Receipt Date: 20161111
  Transmission Date: 20170207
  Serious: Yes (Hospitalization, Other)
  Sender: FDA-Public Use
  Company Number: US-AMGEN-USASL2016156407

PATIENT
  Age: 75 Year
  Sex: Female

DRUGS (1)
  1. REPATHA [Suspect]
     Active Substance: EVOLOCUMAB
     Indication: LOW DENSITY LIPOPROTEIN
     Dosage: 140 MG, TWICW MONTHLY
     Route: 065
     Dates: start: 201604

REACTIONS (5)
  - Hospitalisation [Unknown]
  - Oesophageal stenosis [Unknown]
  - Gastric disorder [Unknown]
  - Weight decreased [Unknown]
  - Productive cough [Unknown]

NARRATIVE: CASE EVENT DATE: 2016
